FAERS Safety Report 9313309 (Version 1)
Quarter: 2013Q2

REPORT INFORMATION
  Report Type: Spontaneous
  Country: US (occurrence: US)
  Receive Date: 20130528
  Receipt Date: 20130528
  Transmission Date: 20140414
  Serious: No
  Sender: FDA-Public Use
  Company Number: US-ABBOTT-13P-163-1059242-00

PATIENT
  Sex: Male
  Weight: 117.13 kg

DRUGS (8)
  1. ANDROGEL [Suspect]
     Indication: BLOOD TESTOSTERONE DECREASED
     Dosage: TWO PUMP ACTUATIONS
     Dates: start: 20130120
  2. BYSTOLIC [Concomitant]
     Indication: HYPERTENSION
  3. BENECAR [Concomitant]
     Indication: HYPERTENSION
  4. FLOMAX [Concomitant]
     Indication: URINE ABNORMALITY
  5. ZEMPLAR [Concomitant]
     Indication: PRODUCT USED FOR UNKNOWN INDICATION
  6. ZOCOR [Concomitant]
     Indication: BLOOD CHOLESTEROL INCREASED
  7. POTASSIUM [Concomitant]
     Indication: MINERAL SUPPLEMENTATION
  8. CHLORTHALIDONE [Concomitant]
     Indication: DIURETIC THERAPY

REACTIONS (1)
  - Prostatomegaly [Not Recovered/Not Resolved]
